FAERS Safety Report 24731974 (Version 1)
Quarter: 2024Q4

REPORT INFORMATION
  Report Type: Spontaneous
  Country: FR (occurrence: FR)
  Receive Date: 20241213
  Receipt Date: 20241213
  Transmission Date: 20250115
  Serious: Yes (Other)
  Sender: BIOVITRUM
  Company Number: FR-BIOVITRUM-2024-FR-015937

PATIENT
  Age: 54 Year
  Sex: Female

DRUGS (1)
  1. KINERET [Suspect]
     Active Substance: ANAKINRA
     Indication: Still^s disease
     Dosage: 1 PRE-FILLED SYRINGE ONCE A DAY
     Route: 058
     Dates: start: 20241202

REACTIONS (4)
  - Dermatitis exfoliative generalised [Recovering/Resolving]
  - Rash erythematous [Recovering/Resolving]
  - Still^s disease [Unknown]
  - Condition aggravated [Unknown]

NARRATIVE: CASE EVENT DATE: 20241209
